FAERS Safety Report 19881829 (Version 1)
Quarter: 2021Q3

REPORT INFORMATION
  Report Type: Spontaneous
  Country: US (occurrence: US)
  Receive Date: 20210924
  Receipt Date: 20210924
  Transmission Date: 20211014
  Serious: No
  Sender: FDA-Public Use
  Company Number: US-TAKEDA-2021TUS056438

PATIENT
  Sex: Female
  Weight: 91 kg

DRUGS (3)
  1. VELCADE [Suspect]
     Active Substance: BORTEZOMIB
     Indication: PLASMA CELL MYELOMA
     Dosage: 2.5 MILLIGRAM, 1/WEEK
     Route: 058
     Dates: start: 2019
  2. XGEVA [Concomitant]
     Active Substance: DENOSUMAB
     Indication: BONE DISORDER
     Dosage: UNK UNK, MONTHLY
  3. REVLIMID [Concomitant]
     Active Substance: LENALIDOMIDE
     Indication: PLASMA CELL MYELOMA
     Dosage: UNK
     Route: 048

REACTIONS (7)
  - Injection site bruising [Unknown]
  - Contusion [Unknown]
  - Nausea [Unknown]
  - Pruritus [Unknown]
  - Erythema [Unknown]
  - Injection site swelling [Unknown]
  - Illness [Unknown]
